FAERS Safety Report 9263256 (Version 1)
Quarter: 2013Q2

REPORT INFORMATION
  Report Type: Spontaneous
  Country: US (occurrence: US)
  Receive Date: 20130430
  Receipt Date: 20130430
  Transmission Date: 20140414
  Serious: Yes (Death)
  Sender: FDA-Public Use
  Company Number: US-ELI_LILLY_AND_COMPANY-US201304007444

PATIENT
  Sex: Female

DRUGS (1)
  1. GEMZAR [Suspect]
     Route: 042

REACTIONS (1)
  - Death [Fatal]
